FAERS Safety Report 13006802 (Version 2)
Quarter: 2017Q1

REPORT INFORMATION
  Report Type: Report from Study
  Country: US (occurrence: US)
  Receive Date: 20161207
  Receipt Date: 20170201
  Transmission Date: 20170428
  Serious: Yes (Other)
  Sender: FDA-Public Use
  Company Number: US-TAKEDA-2016TUS021801

PATIENT
  Sex: Female
  Weight: 79.37 kg

DRUGS (1)
  1. VEDOLIZUMAB [Suspect]
     Active Substance: VEDOLIZUMAB
     Indication: CROHN^S DISEASE
     Dosage: 300 MG, UNK
     Route: 042
     Dates: start: 2014

REACTIONS (9)
  - Cellulitis [Unknown]
  - Intestinal resection [Recovered/Resolved]
  - Fistula [Unknown]
  - Cheilitis [Unknown]
  - Colostomy [Unknown]
  - Arthralgia [Unknown]
  - Sigmoidectomy [Unknown]
  - Hyperhidrosis [Unknown]
  - Drug ineffective [Unknown]

NARRATIVE: CASE EVENT DATE: 2015
